FAERS Safety Report 5000809-X (Version None)
Quarter: 2006Q2

REPORT INFORMATION
  Report Type: 
  Country: None (occurrence: None)
  Receive Date: 20060512
  Receipt Date: 20060209
  Transmission Date: 20061013
  Serious: Yes (Hospitalization)
  Sender: FDA-Public Use
  Company Number: US-MERCK-0602USA02439

PATIENT
  Age: 72 Year
  Sex: Female
  Weight: 60 kg

DRUGS (26)
  1. TERAZOL 7 [Concomitant]
     Route: 065
  2. DIOVAN [Concomitant]
     Route: 065
  3. LOPERAMIDE HYDROCHLORIDE [Concomitant]
     Route: 065
  4. PREVACID [Concomitant]
     Route: 065
  5. PROTONIX [Concomitant]
     Route: 065
  6. L-THYROXIN [Concomitant]
     Route: 065
  7. VIOXX [Suspect]
     Indication: ARTHRITIS
     Route: 048
     Dates: start: 20000201, end: 20030101
  8. ISOSORBIDE [Concomitant]
     Route: 065
  9. NITROQUICK [Concomitant]
     Route: 065
  10. LOTREL [Concomitant]
     Route: 065
  11. LEVOTHROID [Concomitant]
     Route: 065
  12. METOPROLOL [Concomitant]
     Route: 065
  13. AMBIEN [Concomitant]
     Route: 065
  14. PRAVACHOL [Concomitant]
     Route: 065
  15. PROPOXYPHENE HYDROCHLORIDE [Concomitant]
     Route: 065
  16. CLINDAMYCIN [Concomitant]
     Route: 065
  17. HYDROCODONE BITARTRATE [Concomitant]
     Route: 065
  18. PLAVIX [Concomitant]
     Route: 065
  19. LEVAQUIN [Concomitant]
     Route: 065
  20. CLOBETASOL PROPIONATE [Concomitant]
     Route: 065
  21. DIFLUCAN [Concomitant]
     Route: 065
  22. CLOTRIMAZOLE [Concomitant]
     Route: 065
  23. MACROBID [Concomitant]
     Route: 065
  24. UROGESIC BLUE [Concomitant]
     Route: 065
  25. MEPERIDINE HYDROCHLORIDE [Concomitant]
     Route: 065
  26. DIAZEPAM [Concomitant]
     Route: 065

REACTIONS (1)
  - MYOCARDIAL INFARCTION [None]
